FAERS Safety Report 6534584-4 (Version None)
Quarter: 2010Q1

REPORT INFORMATION
  Report Type: 
  Country: None (occurrence: None)
  Receive Date: 20100112
  Receipt Date: 20100108
  Transmission Date: 20100710
  Serious: Yes (Other)
  Sender: FDA-Public Use
  Company Number: A0838300A

PATIENT
  Age: 97 Year
  Sex: Female

DRUGS (14)
  1. LANOXIN [Suspect]
     Indication: CARDIAC FAILURE
     Dosage: .5TAB PER DAY
     Route: 048
     Dates: start: 20090101
  2. METOPROLOL [Concomitant]
  3. SYNTHROID [Concomitant]
  4. POTASSIUM [Concomitant]
  5. OSTEOBIFLEX [Concomitant]
  6. LASIX [Concomitant]
  7. UNKNOWN [Concomitant]
  8. AMITIZA [Concomitant]
     Indication: CHANGE OF BOWEL HABIT
  9. CALCIUM [Concomitant]
  10. POTASSIUM [Concomitant]
  11. IRON [Concomitant]
  12. BENADRYL [Concomitant]
  13. UNKNOWN [Concomitant]
  14. FISH OIL [Concomitant]

REACTIONS (5)
  - DYSKINESIA [None]
  - FEELING ABNORMAL [None]
  - HALLUCINATION [None]
  - SOCIAL AVOIDANT BEHAVIOUR [None]
  - VISUAL IMPAIRMENT [None]
